FAERS Safety Report 6898020-0 (Version None)
Quarter: 2010Q3

REPORT INFORMATION
  Report Type: 
  Country: None (occurrence: None)
  Receive Date: 20100802
  Receipt Date: 20070820
  Transmission Date: 20110219
  Serious: Yes (Other)
  Sender: FDA-Public Use
  Company Number: US-PFIZER INC-2007069346

PATIENT
  Sex: Female
  Weight: 59.09 kg

DRUGS (9)
  1. LYRICA [Suspect]
     Indication: FIBROMYALGIA
     Route: 048
     Dates: start: 20070814
  2. TOPRAL [Concomitant]
  3. TAMOXIFEN CITRATE [Concomitant]
  4. WELLBUTRIN XL [Concomitant]
  5. ALL OTHER THERAPEUTIC PRODUCTS [Concomitant]
  6. MISOPROSTOL [Concomitant]
  7. TYLENOL [Concomitant]
  8. ACETYLSALICYLIC ACID SRT [Concomitant]
  9. LISTROKOL [Concomitant]

REACTIONS (2)
  - DRUG DOSE OMISSION [None]
  - WEIGHT INCREASED [None]
